FAERS Safety Report 9373476 (Version 2)
Quarter: 2013Q3

REPORT INFORMATION
  Report Type: Spontaneous
  Country: US (occurrence: US)
  Receive Date: 20130627
  Receipt Date: 20130806
  Transmission Date: 20140515
  Serious: Yes (Death)
  Sender: FDA-Public Use
  Company Number: US-GILEAD-2013-0077798

PATIENT
  Sex: Female

DRUGS (1)
  1. CAYSTON [Suspect]
     Indication: CYSTIC FIBROSIS
     Dosage: 75 MG, UNK
     Route: 055
     Dates: start: 20100909

REACTIONS (1)
  - Respiratory failure [Fatal]
